FAERS Safety Report 6192846-7 (Version None)
Quarter: 2009Q2

REPORT INFORMATION
  Report Type: 
  Country: None (occurrence: None)
  Receive Date: 20090518
  Receipt Date: 20090506
  Transmission Date: 20091009
  Serious: Yes (Disabling, Other)
  Sender: FDA-Public Use
  Company Number: US-PFIZER INC-2006110669

PATIENT
  Sex: Female
  Weight: 54 kg

DRUGS (9)
  1. PROVERA [Suspect]
     Indication: HORMONE REPLACEMENT THERAPY
     Dosage: UNK
     Route: 048
     Dates: start: 19950401, end: 19980101
  2. MEDROXYPROGESTERONE AND MEDROXYPROGESTERONE ACETATE [Suspect]
     Indication: HORMONE REPLACEMENT THERAPY
     Dosage: UNK
     Route: 048
     Dates: start: 19950401, end: 19980101
  3. PREMARIN [Suspect]
     Indication: HORMONE REPLACEMENT THERAPY
     Dosage: UNK
     Dates: start: 19950401, end: 19980101
  4. PREMPRO [Suspect]
     Indication: HORMONE REPLACEMENT THERAPY
     Dosage: UNK
     Dates: start: 19980101, end: 20000901
  5. ESTRATAB [Suspect]
     Indication: HORMONE REPLACEMENT THERAPY
     Dates: start: 19950101, end: 20000901
  6. MEDROXYPROGESTERONE ACETATE [Suspect]
     Indication: HORMONE REPLACEMENT THERAPY
     Dosage: UNK
     Dates: start: 19950401, end: 19980101
  7. NORVASC [Concomitant]
     Indication: HYPERTENSION
     Dosage: UNK
     Dates: start: 19900101
  8. VALIUM [Concomitant]
     Indication: ANXIETY
     Dosage: UNK
  9. VALIUM [Concomitant]
     Indication: DEPRESSION

REACTIONS (1)
  - BREAST CANCER FEMALE [None]
